FAERS Safety Report 12355875 (Version 1)
Quarter: 2016Q2

REPORT INFORMATION
  Report Type: Spontaneous
  Country: US (occurrence: US)
  Receive Date: 20160511
  Receipt Date: 20160511
  Transmission Date: 20160815
  Serious: No
  Sender: FDA-Public Use
  Company Number: US-QOL MEDICAL, LLC-1051905

PATIENT
  Age: 6 Year
  Sex: Male
  Weight: 28.64 kg

DRUGS (6)
  1. QUILLIVANT XR [Concomitant]
     Active Substance: METHYLPHENIDATE HYDROCHLORIDE
  2. ADVAIR HFA [Concomitant]
     Active Substance: FLUTICASONE PROPIONATE\SALMETEROL XINAFOATE
  3. OTC PROBIOTIC [Concomitant]
  4. SUCRAID [Suspect]
     Active Substance: SACROSIDASE
     Indication: MALABSORPTION
     Route: 048
     Dates: start: 20150706
  5. PROLAIR [Concomitant]
  6. CLARITIN [Concomitant]
     Active Substance: LORATADINE

REACTIONS (4)
  - Constipation [Unknown]
  - Product use issue [None]
  - Diarrhoea [Unknown]
  - Haematochezia [None]

NARRATIVE: CASE EVENT DATE: 20150729
